FAERS Safety Report 5955869-6 (Version None)
Quarter: 2008Q4

REPORT INFORMATION
  Report Type: 
  Country: None (occurrence: None)
  Receive Date: 20081112
  Receipt Date: 20081103
  Transmission Date: 20090506
  Serious: Yes (Hospitalization)
  Sender: FDA-Public Use
  Company Number: 2008SP020904

PATIENT
  Age: 52 Year
  Sex: Male

DRUGS (10)
  1. PEG-INTRON [Suspect]
     Indication: HEPATITIS C
     Dosage: 150 MCG;QW;SC
     Route: 058
     Dates: start: 20080822
  2. RIBASPHERE [Suspect]
     Indication: HEPATITIS C
     Dosage: 600 MG;BID;
     Dates: start: 20080822
  3. REMERON [Suspect]
     Indication: DRUG USE FOR UNKNOWN INDICATION
     Dosage: 60 MG;HS : 30 MG;HS
  4. THORAZINE [Suspect]
     Indication: DRUG USE FOR UNKNOWN INDICATION
     Dosage: 100 MG;TID; : 100 MG;BID
  5. ALPRAZOLAM [Concomitant]
  6. BENZTROPINE MESYLATE [Concomitant]
  7. LASIX [Concomitant]
  8. GUAIFENEX PSE [Concomitant]
  9. POTASSIUM CHLORIDE [Concomitant]
  10. PRILOSEC [Concomitant]

REACTIONS (7)
  - BACK PAIN [None]
  - HYPERTENSION [None]
  - HYPOKALAEMIA [None]
  - LOBAR PNEUMONIA [None]
  - MENTAL STATUS CHANGES [None]
  - PNEUMONIA BACTERIAL [None]
  - SOMNOLENCE [None]
